FAERS Safety Report 6718323-X (Version None)
Quarter: 2010Q2

REPORT INFORMATION
  Report Type: 
  Country: None (occurrence: None)
  Receive Date: 20100504
  Receipt Date: 20100423
  Transmission Date: 20101027
  Serious: Yes (Hospitalization)
  Sender: FDA-Public Use
  Company Number: 7002379

PATIENT
  Age: 60 Year
  Sex: Male
  Weight: 120 kg

DRUGS (6)
  1. REBIF [Suspect]
     Indication: MULTIPLE SCLEROSIS
     Dosage: 44 MCG, 3 IN 1 WK
     Dates: start: 20050101, end: 20100201
  2. ASPIRIN (COLSPRIN) [Concomitant]
  3. ENALAPRIL MALEATE [Concomitant]
  4. LIPITOR [Concomitant]
  5. NIASPAN [Concomitant]
  6. PLAVIX [Concomitant]

REACTIONS (1)
  - HYPERSENSITIVITY [None]
